FAERS Safety Report 6595721-9 (Version None)
Quarter: 2010Q1

REPORT INFORMATION
  Report Type: 
  Country: None (occurrence: None)
  Receive Date: 20100223
  Receipt Date: 20100215
  Transmission Date: 20100710
  Serious: Yes (Hospitalization)
  Sender: FDA-Public Use
  Company Number: US-JNJFOC-20100207625

PATIENT
  Sex: Male
  Weight: 44 kg

DRUGS (5)
  1. INFLIXIMAB [Suspect]
     Indication: CROHN'S DISEASE
     Route: 042
     Dates: start: 20100108
  2. 5-ASA [Concomitant]
  3. PROTONIX [Concomitant]
  4. ANTIBIOTICS [Concomitant]
  5. METHOTREXATE [Concomitant]

REACTIONS (2)
  - ABDOMINAL PAIN [None]
  - VOMITING [None]
